FAERS Safety Report 9857289 (Version 2)
Quarter: 2014Q1

REPORT INFORMATION
  Report Type: Spontaneous
  Country: TR (occurrence: TR)
  Receive Date: 20140130
  Receipt Date: 20140207
  Transmission Date: 20141002
  Serious: Yes (Other)
  Sender: FDA-Public Use
  Company Number: PHHY2014TR007417

PATIENT
  Age: 32 Year
  Sex: Female
  Weight: 78 kg

DRUGS (9)
  1. LIDOCAINE [Suspect]
     Dosage: 3 ML (60MG), UNK
     Route: 008
  2. LIDOCAINE [Suspect]
     Dosage: 2 ML, UNK
     Route: 008
  3. FENTANYL [Suspect]
     Dosage: 50 UG, UNK
     Route: 008
  4. FENTANYL [Suspect]
     Dosage: 50 UG, UNK
     Route: 042
  5. MARCAINE [Suspect]
     Dosage: 12 ML, OF 0.125%
     Route: 008
  6. MARCAINE [Suspect]
     Dosage: 20 ML, OF 0.0625%
     Route: 042
  7. EPINEPHRINE [Suspect]
     Dosage: 5 UG, UNK
     Route: 008
  8. ISOSOL [Concomitant]
  9. SODIUM CHLORIDE [Concomitant]
     Dosage: UNK UKN, UNK

REACTIONS (11)
  - Horner^s syndrome [Recovered/Resolved]
  - Face oedema [Recovered/Resolved]
  - Eyelid ptosis [Recovered/Resolved]
  - Sensation of heaviness [Recovered/Resolved]
  - Hypoaesthesia [Recovered/Resolved]
  - Miosis [Recovered/Resolved]
  - Rash [Recovered/Resolved]
  - Feeling hot [Recovered/Resolved]
  - Maternal exposure during delivery [Unknown]
  - Normal newborn [Unknown]
  - Delivery [Unknown]
